FAERS Safety Report 9018384 (Version 2)
Quarter: 2013Q1

REPORT INFORMATION
  Report Type: Spontaneous
  Country: US (occurrence: US)
  Receive Date: 20130118
  Receipt Date: 20130306
  Transmission Date: 20140127
  Serious: No
  Sender: FDA-Public Use
  Company Number: US-PFIZER INC-2013020828

PATIENT
  Age: 26 Year
  Sex: Female
  Weight: 109 kg

DRUGS (6)
  1. ADVIL [Suspect]
     Indication: ARTHRALGIA
     Dosage: TWO TABLETS OF 200 MG, ONCE
     Route: 048
     Dates: start: 20130115
  2. ADVIL [Suspect]
     Indication: PYREXIA
  3. ADVIL [Suspect]
     Indication: PAIN
  4. ADVIL PM [Suspect]
     Indication: ARTHRALGIA
     Dosage: TWO CAPSULES OF 200 MG, ONCE
     Route: 048
     Dates: start: 20130115
  5. ADVIL PM [Suspect]
     Indication: PYREXIA
  6. ADVIL PM [Suspect]
     Indication: PAIN

REACTIONS (1)
  - Drug ineffective [Unknown]
